FAERS Safety Report 5876775-1 (Version None)
Quarter: 2008Q3

REPORT INFORMATION
  Report Type: 
  Country: None (occurrence: None)
  Receive Date: 20080910
  Receipt Date: 20080828
  Transmission Date: 20090109
  Serious: Yes (Other)
  Sender: FDA-Public Use
  Company Number: JP-ROCHE-580403

PATIENT
  Sex: Female
  Weight: 53 kg

DRUGS (9)
  1. PEGASYS [Suspect]
     Indication: HEPATITIS C
     Route: 058
     Dates: start: 20070811, end: 20080730
  2. COPEGUS [Suspect]
     Indication: HEPATITIS C
     Route: 048
     Dates: start: 20070811, end: 20080803
  3. GASTER D [Concomitant]
     Route: 048
     Dates: start: 20070919
  4. ALESION [Concomitant]
     Route: 048
     Dates: start: 20070919, end: 20071003
  5. RESPLEN [Concomitant]
     Route: 048
     Dates: start: 20071003, end: 20071018
  6. DASEN [Concomitant]
     Dosage: FORM ORAL FORMULATION (NOT OTHERWISE SPECIFIED)
     Route: 048
     Dates: start: 20071003, end: 20071031
  7. SP [Concomitant]
     Dosage: FORM LOZENGE, ROUTE OROPHARINGEAL. TAKEN AS NEEDED
     Route: 050
     Dates: start: 20070926
  8. BONALON [Concomitant]
     Route: 048
     Dates: start: 20071129, end: 20080108
  9. RESTAMIN [Concomitant]
     Route: 061
     Dates: start: 20071024, end: 20080507

REACTIONS (4)
  - DYSGEUSIA [None]
  - DYSPEPSIA [None]
  - PRURITUS [None]
  - PULMONARY TUBERCULOSIS [None]
